FAERS Safety Report 6317720-4 (Version None)
Quarter: 2009Q3

REPORT INFORMATION
  Report Type: 
  Country: None (occurrence: None)
  Receive Date: 20090821
  Receipt Date: 20090709
  Transmission Date: 20100115
  Serious: Yes (Other)
  Sender: FDA-Public Use
  Company Number: GB-JNJFOC-20090703294

PATIENT

DRUGS (1)
  1. INFLIXIMAB [Suspect]
     Indication: TAKAYASU'S ARTERITIS
     Route: 042

REACTIONS (1)
  - LUPUS-LIKE SYNDROME [None]
